FAERS Safety Report 9587538 (Version 1)
Quarter: 2013Q4

REPORT INFORMATION
  Report Type: Spontaneous
  Country: US (occurrence: US)
  Receive Date: 20131003
  Receipt Date: 20131003
  Transmission Date: 20140711
  Serious: Yes (Other)
  Sender: FDA-Public Use
  Company Number: US-PFIZER INC-2013282552

PATIENT
  Age: 36 Year
  Sex: Male
  Weight: 81.63 kg

DRUGS (5)
  1. LIPITOR [Suspect]
     Dosage: UNK
     Dates: start: 201301
  2. VERSED [Suspect]
     Dosage: UNK
  3. CARBAMAZEPINE [Concomitant]
     Dosage: 400 MG, 3X/DAY
  4. LEVETIRACETAM [Concomitant]
     Dosage: 750 MG, 2X/DAY
     Dates: start: 2007
  5. LOVAZA [Concomitant]
     Dosage: 2 G, 2X/DAY

REACTIONS (5)
  - Convulsion [Unknown]
  - Aggression [Unknown]
  - Aggression [Unknown]
  - Abnormal behaviour [Unknown]
  - Insomnia [Unknown]
